FAERS Safety Report 6876563-3 (Version None)
Quarter: 2010Q3

REPORT INFORMATION
  Report Type: 
  Country: None (occurrence: None)
  Receive Date: 20100727
  Receipt Date: 20100726
  Transmission Date: 20110219
  Serious: Yes (Hospitalization, Other)
  Sender: FDA-Public Use
  Company Number: IT-ROXANE LABORATORIES, INC.-2010-RO-00903RO

PATIENT
  Age: 59 Year
  Sex: Male

DRUGS (6)
  1. RAMIPRIL [Suspect]
  2. AMLODIPINE [Suspect]
  3. CLARITHROMYCIN [Suspect]
     Indication: LUNG INFECTION
     Dosage: 500 MG
  4. INSULIN LISPRO [Suspect]
  5. INSULIN GLARGINE [Suspect]
  6. ATORVASTATIN [Suspect]

REACTIONS (11)
  - ACUTE MYOCARDIAL INFARCTION [None]
  - ATAXIA [None]
  - DENERVATION ATROPHY [None]
  - HEPATOMEGALY [None]
  - MUSCULAR WEAKNESS [None]
  - PULMONARY OEDEMA [None]
  - RENAL FAILURE ACUTE [None]
  - RESPIRATORY DISTRESS [None]
  - RESPIRATORY TRACT INFECTION [None]
  - RHABDOMYOLYSIS [None]
  - SCIATIC NERVE NEUROPATHY [None]
